FAERS Safety Report 4377807-2 (Version None)
Quarter: 2004Q2

REPORT INFORMATION
  Report Type: 
  Country: None (occurrence: None)
  Receive Date: 20040615
  Receipt Date: 20040615
  Transmission Date: 20050107
  Serious: Yes (Hospitalization)
  Sender: FDA-Public Use
  Company Number: None

PATIENT
  Age: 46 Year
  Sex: Female
  Weight: 61.2 kg

DRUGS (7)
  1. TAXOTERE [Suspect]
     Indication: LUNG NEOPLASM MALIGNANT
     Dosage: 59.4 MG Q WK X 3 IV
     Route: 042
     Dates: start: 20040527, end: 20040610
  2. GEMCITABINE [Suspect]
     Indication: LUNG NEOPLASM MALIGNANT
     Dosage: 990 MG Q WK X IV
     Route: 042
     Dates: start: 20040527, end: 20040610
  3. NEXIUM [Concomitant]
  4. HYCODAN [Concomitant]
  5. NILSTAT [Concomitant]
  6. ZOFRAN [Concomitant]
  7. ZYRTEC [Concomitant]

REACTIONS (2)
  - DYSPNOEA [None]
  - LETHARGY [None]
